FAERS Safety Report 5936307-6 (Version None)
Quarter: 2008Q4

REPORT INFORMATION
  Report Type: 
  Country: None (occurrence: None)
  Receive Date: 20081030
  Receipt Date: 20081027
  Transmission Date: 20090506
  Serious: Yes (Life-Threatening)
  Sender: FDA-Public Use
  Company Number: DE-AVENTIS-200612612DE

PATIENT
  Age: 83 Year
  Sex: Male
  Weight: 92 kg

DRUGS (5)
  1. KETEK [Suspect]
     Indication: BRONCHITIS
     Dosage: DOSE: NOT REPORTED
     Route: 048
     Dates: start: 20060905, end: 20060906
  2. SORTIS                             /01326101/ [Suspect]
     Indication: CORONARY ARTERY DISEASE
     Route: 048
  3. ASPIRIN [Concomitant]
     Indication: CORONARY ARTERY DISEASE
     Dosage: DOSE: 1X1
     Route: 048
  4. CONCOR                             /00802602/ [Concomitant]
     Indication: CORONARY ARTERY DISEASE
     Route: 048
  5. MAGNESIUM SULFATE [Concomitant]
     Indication: CORONARY ARTERY DISEASE
     Dosage: DOSE: 3X1
     Route: 048

REACTIONS (7)
  - ATOPY [None]
  - DERMATITIS BULLOUS [None]
  - DYSPNOEA [None]
  - HYPERHIDROSIS [None]
  - LIVER FUNCTION TEST ABNORMAL [None]
  - NAUSEA [None]
  - PRURITUS [None]
